FAERS Safety Report 4590557-2 (Version None)
Quarter: 2005Q1

REPORT INFORMATION
  Report Type: 
  Country: None (occurrence: None)
  Receive Date: 20050224
  Receipt Date: 20041014
  Transmission Date: 20050727
  Serious: Yes (Death)
  Sender: FDA-Public Use
  Company Number: US-GLAXOSMITHKLINE-A0531041A

PATIENT
  Age: 29 Year
  Sex: Male

DRUGS (2)
  1. PAXIL [Suspect]
     Indication: ANXIETY
     Route: 048
     Dates: start: 20020711
  2. ALCOHOL [Suspect]
     Indication: ALCOHOLISM

REACTIONS (11)
  - ALCOHOL POISONING [None]
  - ALCOHOL USE [None]
  - CARDIAC PERFORATION [None]
  - COMPLETED SUICIDE [None]
  - DRUG INEFFECTIVE [None]
  - FEELING COLD [None]
  - GUN SHOT WOUND [None]
  - HAEMOPNEUMOTHORAX [None]
  - LUNG INJURY [None]
  - POISONING [None]
  - PULSE ABSENT [None]
